FAERS Safety Report 7583555-8 (Version None)
Quarter: 2011Q2

REPORT INFORMATION
  Report Type: 
  Country: None (occurrence: None)
  Receive Date: 20110630
  Receipt Date: 20110628
  Transmission Date: 20111010
  Serious: No
  Sender: FDA-Public Use
  Company Number: US-TEVA-288383USA

PATIENT
  Sex: Female
  Weight: 79.45 kg

DRUGS (9)
  1. LUNESTA [Concomitant]
     Indication: SLEEP DISORDER
  2. FLUOXETINE [Concomitant]
     Indication: DEPRESSION
  3. COPAXONE [Suspect]
     Indication: MULTIPLE SCLEROSIS
     Route: 058
     Dates: start: 20040501, end: 20110601
  4. CLONAZEPAM [Concomitant]
  5. DIAZEPAM [Concomitant]
  6. LAMOTRIGINE [Concomitant]
  7. PROPRANOLOL [Concomitant]
  8. DETROL [Concomitant]
  9. TRAZODONE HCL [Concomitant]

REACTIONS (3)
  - SKIN LESION [None]
  - INJECTION SITE REACTION [None]
  - URTICARIA [None]
